FAERS Safety Report 4520352-1 (Version None)
Quarter: 2004Q4

REPORT INFORMATION
  Report Type: 
  Country: None (occurrence: None)
  Receive Date: 20041207
  Receipt Date: 20041129
  Transmission Date: 20050328
  Serious: Yes (Hospitalization)
  Sender: FDA-Public Use
  Company Number: SE-GLAXOSMITHKLINE-B0359152A

PATIENT
  Age: 71 Year
  Sex: Male

DRUGS (7)
  1. EPIVIR [Suspect]
     Indication: HIV INFECTION
     Dosage: 300MG PER DAY
     Route: 048
     Dates: start: 20020201
  2. VIDEX [Suspect]
     Indication: HIV INFECTION
     Dosage: 400MG PER DAY
     Route: 048
     Dates: start: 20020201
  3. STOCRIN [Suspect]
     Indication: HIV INFECTION
     Dosage: 600MG PER DAY
     Route: 048
     Dates: start: 20020201
  4. TENORMIN [Concomitant]
     Dosage: 100MG PER DAY
     Route: 065
  5. LASIX [Concomitant]
     Dosage: 60MG PER DAY
     Route: 065
  6. RENITEC [Concomitant]
     Dosage: 20MG PER DAY
     Route: 065
  7. GLYBURIDE [Concomitant]
     Dosage: 3.5MG PER DAY
     Route: 065

REACTIONS (2)
  - DEEP VEIN THROMBOSIS [None]
  - PHLEBOTHROMBOSIS [None]
